FAERS Safety Report 16521786 (Version 2)
Quarter: 2019Q3

REPORT INFORMATION
  Report Type: Spontaneous
  Country: US (occurrence: US)
  Receive Date: 20190702
  Receipt Date: 20190725
  Transmission Date: 20191004
  Serious: No
  Sender: FDA-Public Use
  Company Number: US-GALDERMA-US18051453

PATIENT
  Age: 26 Year
  Sex: Female

DRUGS (2)
  1. PROACTIV MD ADAPALENE ACNE TREATMENT [Suspect]
     Active Substance: ADAPALENE
     Indication: RASH PAPULAR
     Dosage: 0.1%
     Route: 061
     Dates: start: 20181103, end: 20181117
  2. PRENATAL [Concomitant]
     Active Substance: VITAMINS

REACTIONS (4)
  - Hypersensitivity [Recovered/Resolved]
  - Product use in unapproved indication [Recovered/Resolved]
  - Rash papular [Recovered/Resolved]
  - Exposure during pregnancy [Recovered/Resolved]

NARRATIVE: CASE EVENT DATE: 20181103
